FAERS Safety Report 23387180 (Version 1)
Quarter: 2024Q1

REPORT INFORMATION
  Report Type: Spontaneous
  Country: US (occurrence: None)
  Receive Date: 20240109
  Receipt Date: 20240109
  Transmission Date: 20240410
  Serious: Yes (Life-Threatening)
  Sender: FDA-Public Use
  Company Number: None

PATIENT
  Age: 65 Year
  Sex: Female
  Weight: 60.75 kg

DRUGS (17)
  1. MONTELUKAST [Suspect]
     Active Substance: MONTELUKAST SODIUM
     Indication: Allergy prophylaxis
     Dosage: OTHER QUANTITY : 1 TABLET(S);?OTHER FREQUENCY : ONCE/WEEK;?
     Route: 048
     Dates: start: 20230808, end: 20231003
  2. MONTELUKAST [Suspect]
     Active Substance: MONTELUKAST SODIUM
     Indication: Drug hypersensitivity
  3. REVLIMID [Concomitant]
     Active Substance: LENALIDOMIDE
  4. DARZALEX FASPRO [Concomitant]
     Active Substance: DARATUMUMAB\HYALURONIDASE-FIHJ
  5. DEXAMETHASONE [Concomitant]
     Active Substance: DEXAMETHASONE
  6. BORTEZOMIB [Concomitant]
     Active Substance: BORTEZOMIB
  7. ZOMETA [Concomitant]
     Active Substance: ZOLEDRONIC ACID
  8. ACYCLOVIR [Concomitant]
     Active Substance: ACYCLOVIR
  9. ASPIRIN [Concomitant]
     Active Substance: ASPIRIN
  10. OXYCODONE [Concomitant]
     Active Substance: OXYCODONE
  11. LISINOPRIL [Concomitant]
     Active Substance: LISINOPRIL
  12. ONDANSETRON [Concomitant]
     Active Substance: ONDANSETRON
  13. TYLENOL [Concomitant]
     Active Substance: ACETAMINOPHEN
  14. SENNA [Concomitant]
     Active Substance: SENNA LEAF\SENNOSIDES\SENNOSIDES A AND B
  15. MIRALAX [Concomitant]
     Active Substance: POLYETHYLENE GLYCOL 3350
  16. CALCIUM CITRATE [Concomitant]
     Active Substance: CALCIUM CITRATE
  17. VITAMIN D [Concomitant]
     Active Substance: VITAMIN D NOS

REACTIONS (2)
  - Anxiety [None]
  - Suicidal ideation [None]

NARRATIVE: CASE EVENT DATE: 20230911
